FAERS Safety Report 5408189-2 (Version None)
Quarter: 2007Q3

REPORT INFORMATION
  Report Type: 
  Country: None (occurrence: None)
  Receive Date: 20070806
  Receipt Date: 20070724
  Transmission Date: 20080115
  Serious: Yes (Hospitalization)
  Sender: FDA-Public Use
  Company Number: VNL_00660_2007

PATIENT
  Sex: Male

DRUGS (5)
  1. APO-GO (APO-GO SOLUTION FOR INJECTION (AMPOULES) 10 MG/ML - APOMORPHIN [Suspect]
     Indication: PARKINSON'S DISEASE
     Dosage: (4 MG PER HOUR FOR 1 YEAR 6 WEEKS 5 DAYS SUBCUTANEUS)
     Route: 058
     Dates: start: 20050611, end: 20060727
  2. LEVODOPA (LEVODOPA) [Suspect]
     Indication: PARKINSON'S DISEASE
     Dosage: (900 MG DAILY)
     Dates: start: 20060301
  3. COMTESS (COMTESS - ENTACAPONE) [Suspect]
     Indication: PARKINSON'S DISEASE
     Dosage: (1800 MG DAILY)
     Dates: start: 20060301
  4. SIFROL (SIFROL - PRAMIXOLE) (NOT SPECIFIED) [Suspect]
     Indication: PARKINSON'S DISEASE
     Dosage: (2.8 MG DAILY)
     Dates: start: 20060301
  5. AMANTADINE HCL [Suspect]
     Indication: PARKINSON'S DISEASE
     Dosage: (2000 MG DAILY)
     Dates: start: 20060301

REACTIONS (2)
  - LIBIDO INCREASED [None]
  - PSYCHOTIC DISORDER [None]
